FAERS Safety Report 8817426 (Version 2)
Quarter: 2012Q4

REPORT INFORMATION
  Report Type: 
  Country: US (occurrence: US)
  Receive Date: 20121001
  Receipt Date: 20121116
  Transmission Date: 20130627
  Serious: Yes (Hospitalization, Other)
  Sender: FDA-Public Use
  Company Number: US-ASTELLAS-2012US007679

PATIENT
  Age: 52 None
  Sex: Female
  Weight: 82 kg

DRUGS (8)
  1. PROGRAF [Suspect]
     Indication: RENAL TRANSPLANT
     Dosage: 1 mg, bid
     Route: 048
     Dates: start: 20070808
  2. CORTICOSTEROID NOS [Suspect]
     Indication: PRODUCT USED FOR UNKNOWN INDICATION
     Dosage: UNK
     Route: 065
  3. METOPROLOL [Suspect]
     Indication: PRODUCT USED FOR UNKNOWN INDICATION
     Dosage: 50 mg, bid
     Route: 048
     Dates: end: 201209
  4. PREDNISONE [Concomitant]
     Indication: PRODUCT USED FOR UNKNOWN INDICATION
     Dosage: 5 mg, UID/QD
     Route: 048
  5. PREDNISONE [Concomitant]
     Dosage: 10 mg, UID/QD
     Route: 048
  6. NEXIUM                             /01479302/ [Concomitant]
     Indication: PRODUCT USED FOR UNKNOWN INDICATION
     Dosage: 20 mg, UID/QD
     Route: 048
  7. SIMVASTATIN [Concomitant]
     Indication: PRODUCT USED FOR UNKNOWN INDICATION
     Dosage: 20 mg, UID/QD
     Route: 048
  8. MYFORTIC [Concomitant]
     Indication: PRODUCT USED FOR UNKNOWN INDICATION
     Dosage: 360 mg, bid
     Route: 048

REACTIONS (19)
  - Treatment noncompliance [Unknown]
  - Renal tubular acidosis [Unknown]
  - Adrenal insufficiency [Unknown]
  - Dehydration [Unknown]
  - Hypokalaemia [Recovering/Resolving]
  - Renal failure acute [Not Recovered/Not Resolved]
  - Metabolic acidosis [Recovering/Resolving]
  - Kidney transplant rejection [Unknown]
  - Type 2 diabetes mellitus [Unknown]
  - Chronic allograft nephropathy [Unknown]
  - Leukocytosis [Unknown]
  - Clostridium difficile infection [Recovering/Resolving]
  - Klebsiella infection [Recovering/Resolving]
  - Culture urine positive [Unknown]
  - Hypothyroidism [Unknown]
  - Stress [Unknown]
  - Vitamin D deficiency [Unknown]
  - Bradycardia [Unknown]
  - Anaemia [Unknown]
